FAERS Safety Report 10463758 (Version 1)
Quarter: 2014Q3

REPORT INFORMATION
  Report Type: Spontaneous
  Country: US (occurrence: None)
  Receive Date: 20140918
  Receipt Date: 20140918
  Transmission Date: 20150326
  Serious: Yes (Hospitalization, Disabling, Other)
  Sender: FDA-Public Use
  Company Number: None

PATIENT
  Age: 31 Year
  Sex: Female
  Weight: 54.43 kg

DRUGS (1)
  1. EFFEXOR XR [Suspect]
     Active Substance: VENLAFAXINE HYDROCHLORIDE
     Indication: DEPRESSION
     Dosage: 2 PILLS ONCE DAILY TAKEN BY MOUTH
     Route: 048
     Dates: start: 20110901, end: 20140917

REACTIONS (15)
  - Hypoaesthesia [None]
  - Drug withdrawal syndrome [None]
  - Pregnancy [None]
  - Disturbance in attention [None]
  - Anhedonia [None]
  - Vomiting [None]
  - Paraesthesia [None]
  - Hyperhidrosis [None]
  - Depression [None]
  - Diarrhoea [None]
  - Suicidal ideation [None]
  - Impaired work ability [None]
  - Night sweats [None]
  - Influenza [None]
  - Fatigue [None]
